FAERS Safety Report 12395194 (Version 18)
Quarter: 2023Q2

REPORT INFORMATION
  Report Type: Report from Study
  Country: CR (occurrence: CR)
  Receive Date: 20160523
  Receipt Date: 20230418
  Transmission Date: 20230722
  Serious: Yes (Life-Threatening, Hospitalization, Other)
  Sender: FDA-Public Use
  Company Number: PHHY2016CR032866

PATIENT
  Sex: Female
  Weight: 65 kg

DRUGS (7)
  1. GILENYA [Suspect]
     Active Substance: FINGOLIMOD HYDROCHLORIDE
     Indication: Multiple sclerosis
     Dosage: 0.5 MG, QD
     Route: 065
     Dates: start: 2014
  2. GILENYA [Suspect]
     Active Substance: FINGOLIMOD HYDROCHLORIDE
     Dosage: 0.5 MG, QD
     Route: 048
     Dates: start: 2015
  3. GILENYA [Suspect]
     Active Substance: FINGOLIMOD HYDROCHLORIDE
     Dosage: 0.5 MG, QD
     Route: 048
     Dates: start: 20160308
  4. GILENYA [Suspect]
     Active Substance: FINGOLIMOD HYDROCHLORIDE
     Dosage: 0.5 MG, QD
     Route: 048
     Dates: start: 2016
  5. TEGRETOL [Suspect]
     Active Substance: CARBAMAZEPINE
     Indication: Insomnia
     Dosage: 200 MG, QD (AT NIGHT)
     Route: 048
  6. TEGRETOL [Suspect]
     Active Substance: CARBAMAZEPINE
     Dosage: 2 DOSAGE FORM, BID (AT NIGHT AND ONE AT BREAKFAST)
     Route: 048
     Dates: start: 2010
  7. VITAMIN D [Concomitant]
     Active Substance: VITAMIN D NOS
     Indication: Product used for unknown indication
     Dosage: 1 DOSAGE FORM, QD
     Route: 048

REACTIONS (43)
  - Pain in extremity [Unknown]
  - Arthralgia [Unknown]
  - Tachycardia [Recovered/Resolved]
  - Palpitations [Recovered/Resolved]
  - Panic attack [Unknown]
  - Bradycardia [Unknown]
  - Memory impairment [Not Recovered/Not Resolved]
  - Optic neuritis [Unknown]
  - Multiple sclerosis [Unknown]
  - Stress [Unknown]
  - Dyspnoea [Unknown]
  - Muscle disorder [Not Recovered/Not Resolved]
  - Restlessness [Unknown]
  - Fall [Unknown]
  - Weight decreased [Unknown]
  - Motor dysfunction [Unknown]
  - Gait disturbance [Not Recovered/Not Resolved]
  - Somnolence [Unknown]
  - Temperature intolerance [Unknown]
  - Contusion [Unknown]
  - Movement disorder [Recovering/Resolving]
  - Concomitant disease aggravated [Recovering/Resolving]
  - Gastrooesophageal reflux disease [Unknown]
  - Insomnia [Unknown]
  - Eye disorder [Unknown]
  - Photopsia [Unknown]
  - Eye pain [Unknown]
  - Visual impairment [Not Recovered/Not Resolved]
  - Speech disorder [Not Recovered/Not Resolved]
  - Coordination abnormal [Unknown]
  - Dysstasia [Unknown]
  - Central nervous system lesion [Unknown]
  - Dysuria [Recovered/Resolved]
  - Presbyopia [Unknown]
  - Hypoaesthesia [Unknown]
  - Trigeminal neuralgia [Unknown]
  - Malaise [Unknown]
  - Urinary incontinence [Recovered/Resolved]
  - Fatigue [Unknown]
  - Drug resistance [Unknown]
  - Headache [Unknown]
  - Product use in unapproved indication [Unknown]
  - Drug ineffective [Unknown]

NARRATIVE: CASE EVENT DATE: 20040101
